FAERS Safety Report 17665673 (Version 1)
Quarter: 2020Q2

REPORT INFORMATION
  Report Type: Spontaneous
  Country: US (occurrence: US)
  Receive Date: 20200413
  Receipt Date: 20200413
  Transmission Date: 20200713
  Serious: No
  Sender: FDA-Public Use
  Company Number: None

PATIENT
  Age: 74 Year
  Sex: Female

DRUGS (1)
  1. CAPECITABINE TAB 500MG [Suspect]
     Active Substance: CAPECITABINE
     Route: 048
     Dates: start: 201906

REACTIONS (5)
  - Erythema [None]
  - Skin fissures [None]
  - Tenderness [None]
  - Musculoskeletal discomfort [None]
  - Skin exfoliation [None]

NARRATIVE: CASE EVENT DATE: 20200410
